FAERS Safety Report 4337605-2 (Version None)
Quarter: 2004Q2

REPORT INFORMATION
  Report Type: 
  Country: None (occurrence: None)
  Receive Date: 20040413
  Receipt Date: 20030317
  Transmission Date: 20050107
  Serious: No
  Sender: FDA-Public Use
  Company Number: US-GLAXOSMITHKLINE-A0401127A

PATIENT
  Age: 61 Year
  Sex: Female

DRUGS (1)
  1. DEXTRO AMPHETAMINE SULFATE TAB [Suspect]
     Indication: NARCOLEPSY
     Dosage: 45MG PER DAY
     Route: 065

REACTIONS (1)
  - DRUG INEFFECTIVE [None]
